FAERS Safety Report 5990005-1 (Version None)
Quarter: 2008Q4

REPORT INFORMATION
  Report Type: 
  Country: None (occurrence: None)
  Receive Date: 20081209
  Receipt Date: 20081209
  Transmission Date: 20090506
  Serious: Yes (Other)
  Sender: FDA-Public Use
  Company Number: None

PATIENT
  Age: 32 Year
  Sex: Female
  Weight: 64.8644 kg

DRUGS (1)
  1. MIRENA [Suspect]
     Indication: CONTRACEPTION
     Dosage: 1      5 YEARS INTRA-UTERINE
     Route: 015
     Dates: start: 20080704, end: 20081208

REACTIONS (3)
  - IMMUNOSUPPRESSION [None]
  - INFECTION [None]
  - IUCD COMPLICATION [None]
